FAERS Safety Report 22109491 (Version 2)
Quarter: 2023Q2

REPORT INFORMATION
  Report Type: Spontaneous
  Country: US (occurrence: US)
  Receive Date: 20230317
  Receipt Date: 20230509
  Transmission Date: 20230722
  Serious: No
  Sender: FDA-Public Use
  Company Number: US-TEVA-2023-US-2863682

PATIENT
  Sex: Female

DRUGS (2)
  1. TEMAZEPAM [Suspect]
     Active Substance: TEMAZEPAM
     Indication: Insomnia
     Dosage: STRENGTH: 30 MG, OVER 10 YEARS
  2. TEMAZEPAM [Suspect]
     Active Substance: TEMAZEPAM
     Dosage: 30 MG

REACTIONS (2)
  - Drug ineffective [Unknown]
  - Product after taste [Unknown]

NARRATIVE: CASE EVENT DATE: 20230101
